FAERS Safety Report 7283002-X (Version None)
Quarter: 2011Q1

REPORT INFORMATION
  Report Type: 
  Country: None (occurrence: None)
  Receive Date: 20110209
  Receipt Date: 20110204
  Transmission Date: 20110831
  Serious: Yes (Other)
  Sender: FDA-Public Use
  Company Number: US-PFIZER INC-2011026231

PATIENT
  Sex: Male

DRUGS (2)
  1. CHANTIX [Suspect]
     Dosage: UNK
  2. HYDROCORTISONE [Suspect]

REACTIONS (4)
  - BODY TEMPERATURE DECREASED [None]
  - BLOOD PRESSURE DECREASED [None]
  - FEELING COLD [None]
  - NASOPHARYNGITIS [None]
